FAERS Safety Report 6120857-6 (Version None)
Quarter: 2009Q1

REPORT INFORMATION
  Report Type: 
  Country: None (occurrence: None)
  Receive Date: 20090312
  Receipt Date: 20090225
  Transmission Date: 20090719
  Serious: Yes (Life-Threatening)
  Sender: FDA-Public Use
  Company Number: 2009S1003443

PATIENT
  Age: 15 Year
  Sex: Female
  Weight: 60 kg

DRUGS (3)
  1. CITALOPRAM HYDROBROMIDE [Suspect]
     Indication: SUICIDE ATTEMPT
     Dosage: 10 MG; 6T1_DAY
     Dates: start: 20090109
  2. LORAZEPAM [Suspect]
     Indication: SUICIDE ATTEMPT
     Dosage: 1 MG; 20_1_DAY
     Dates: start: 20090109
  3. NOVOTHYRAL (NOVOTHYRAL) [Suspect]
     Indication: SUICIDE ATTEMPT
     Dosage: 800 UG; 8_1_ DAY
     Dates: start: 20090109

REACTIONS (5)
  - DISORIENTATION [None]
  - ENURESIS [None]
  - FATIGUE [None]
  - INTENTIONAL OVERDOSE [None]
  - SUICIDE ATTEMPT [None]
